FAERS Safety Report 5922582-0 (Version None)
Quarter: 2008Q4

REPORT INFORMATION
  Report Type: 
  Country: None (occurrence: None)
  Receive Date: 20081017
  Receipt Date: 20081009
  Transmission Date: 20090506
  Serious: Yes (Hospitalization, Other)
  Sender: FDA-Public Use
  Company Number: PHEH2008US09051

PATIENT
  Age: 6 Month
  Sex: Male

DRUGS (1)
  1. TRILEPTAL [Suspect]
     Dosage: UNK

REACTIONS (3)
  - HYPERKALAEMIA [None]
  - HYPERNATRAEMIA [None]
  - RENAL DISORDER [None]
